FAERS Safety Report 9685085 (Version 2)
Quarter: 2013Q4

REPORT INFORMATION
  Report Type: Spontaneous
  Country: DE (occurrence: DE)
  Receive Date: 20131113
  Receipt Date: 20131118
  Transmission Date: 20140711
  Serious: Yes (Hospitalization)
  Sender: FDA-Public Use
  Company Number: DE-JNJFOC-20131103266

PATIENT
  Age: 48 Year
  Sex: Female

DRUGS (2)
  1. REMICADE [Suspect]
     Indication: COLITIS ULCERATIVE
     Route: 042
     Dates: start: 20130312, end: 201303
  2. REMICADE [Suspect]
     Indication: COLITIS ULCERATIVE
     Dosage: 2X400 MG
     Route: 042

REACTIONS (1)
  - Myocardial infarction [Unknown]
